FAERS Safety Report 21274169 (Version 2)
Quarter: 2022Q3

REPORT INFORMATION
  Report Type: Spontaneous
  Country: US (occurrence: US)
  Receive Date: 20220831
  Receipt Date: 20220920
  Transmission Date: 20221026
  Serious: Yes (Other)
  Sender: FDA-Public Use
  Company Number: US-PFIZER INC-202201095912

PATIENT

DRUGS (2)
  1. TIKOSYN [Suspect]
     Active Substance: DOFETILIDE
     Dosage: UNK, 2X/DAY
     Route: 065
  2. ELIQUIS [Suspect]
     Active Substance: APIXABAN
     Dosage: UNK UNK, 2X/DAY
     Route: 065

REACTIONS (5)
  - Cardiac ablation [Unknown]
  - Nervousness [Unknown]
  - Illness [Unknown]
  - Inappropriate schedule of product administration [Unknown]
  - Malaise [Unknown]
